FAERS Safety Report 15376766 (Version 1)
Quarter: 2018Q3

REPORT INFORMATION
  Report Type: Spontaneous
  Country: US (occurrence: US)
  Receive Date: 20180913
  Receipt Date: 20180913
  Transmission Date: 20181010
  Serious: No
  Sender: FDA-Public Use
  Company Number: US-JNJFOC-20180839716

PATIENT
  Sex: Female

DRUGS (5)
  1. FOLIC ACID. [Concomitant]
     Active Substance: FOLIC ACID
     Route: 048
  2. STELARA [Suspect]
     Active Substance: USTEKINUMAB
     Indication: CROHN^S DISEASE
     Route: 058
  3. METFORMIN [Concomitant]
     Active Substance: METFORMIN HYDROCHLORIDE
     Route: 048
  4. PANTOPRAZOLE [Concomitant]
     Active Substance: PANTOPRAZOLE
     Route: 048
  5. FLUOXETINE [Concomitant]
     Active Substance: FLUOXETINE HYDROCHLORIDE
     Route: 048

REACTIONS (4)
  - Gait disturbance [Unknown]
  - Dizziness [Unknown]
  - Fall [Unknown]
  - Balance disorder [Unknown]
